FAERS Safety Report 17882558 (Version 8)
Quarter: 2020Q4

REPORT INFORMATION
  Report Type: Report from Study
  Country: US (occurrence: US)
  Receive Date: 20200610
  Receipt Date: 20201102
  Transmission Date: 20210113
  Serious: Yes (Hospitalization)
  Sender: FDA-Public Use
  Company Number: US-EISAI MEDICAL RESEARCH-EC-2020-075747

PATIENT
  Age: 81 Year
  Sex: Female

DRUGS (11)
  1. LENVIMA [Suspect]
     Active Substance: LENVATINIB
     Dosage: ONCE DAILY 21 DAYS ON AND 7 DAYS OFF
     Route: 048
     Dates: start: 20201007, end: 20201008
  2. LENVIMA [Suspect]
     Active Substance: LENVATINIB
     Dosage: ONCE DAILY 21 DAYS ON AND 7 DAYS OFF
     Route: 048
     Dates: start: 20200825, end: 20200903
  3. LENVIMA [Suspect]
     Active Substance: LENVATINIB
     Dosage: ONCE DAILY 21 DAYS ON AND 7 DAYS OFF
     Route: 048
     Dates: start: 20201010
  4. CLONIDINE. [Suspect]
     Active Substance: CLONIDINE
     Route: 065
     Dates: start: 20200831, end: 202009
  5. LENVIMA [Suspect]
     Active Substance: LENVATINIB
     Route: 048
     Dates: start: 20201009, end: 20201009
  6. KEYTRUDA [Concomitant]
     Active Substance: PEMBROLIZUMAB
  7. LENVIMA [Suspect]
     Active Substance: LENVATINIB
     Route: 048
     Dates: start: 20200916, end: 20200928
  8. LENVIMA [Suspect]
     Active Substance: LENVATINIB
     Indication: ENDOMETRIAL CANCER
     Route: 048
     Dates: start: 20200601, end: 202006
  9. LENVIMA [Suspect]
     Active Substance: LENVATINIB
     Route: 048
     Dates: start: 20200715, end: 20200813
  10. CLONIDINE. [Suspect]
     Active Substance: CLONIDINE
     Indication: PRODUCT USED FOR UNKNOWN INDICATION
     Dosage: FREQUENCY UNKNOWN
     Route: 065
     Dates: end: 2020
  11. CLONIDINE. [Suspect]
     Active Substance: CLONIDINE
     Route: 065
     Dates: start: 202009

REACTIONS (25)
  - Somnolence [Unknown]
  - Dysphonia [Unknown]
  - Tremor [Not Recovered/Not Resolved]
  - Flushing [Unknown]
  - Carbohydrate antigen 125 increased [Unknown]
  - Dry skin [Not Recovered/Not Resolved]
  - Platelet count decreased [Not Recovered/Not Resolved]
  - Aphasia [Not Recovered/Not Resolved]
  - Cough [Unknown]
  - Peripheral swelling [Not Recovered/Not Resolved]
  - Fatigue [Unknown]
  - Epistaxis [Recovering/Resolving]
  - Pruritus [Recovered/Resolved]
  - Hypertension [Recovering/Resolving]
  - Palmar-plantar erythrodysaesthesia syndrome [Not Recovered/Not Resolved]
  - Heart rate increased [Unknown]
  - Nephrolithiasis [Unknown]
  - Blood thyroid stimulating hormone increased [Unknown]
  - Gait disturbance [Not Recovered/Not Resolved]
  - Paraesthesia [Unknown]
  - Dizziness [Not Recovered/Not Resolved]
  - Asthenia [Not Recovered/Not Resolved]
  - Nasal dryness [Recovering/Resolving]
  - Accidental overdose [Recovered/Resolved]
  - Rash macular [Unknown]

NARRATIVE: CASE EVENT DATE: 2020
